FAERS Safety Report 10003468 (Version 1)
Quarter: 2014Q1

REPORT INFORMATION
  Report Type: Spontaneous
  Country: FR (occurrence: FR)
  Receive Date: 20140312
  Receipt Date: 20140312
  Transmission Date: 20141002
  Serious: Yes (Hospitalization)
  Sender: FDA-Public Use
  Company Number: PHHY2014FR028728

PATIENT
  Age: 84 Year
  Sex: Female

DRUGS (13)
  1. BISOPROLOL [Suspect]
     Indication: ARRHYTHMIA
     Dosage: 1 DF, QD
     Route: 048
     Dates: end: 20080211
  2. TRIMETAZIDINE HYDROCHLORIDE SANDOZ [Suspect]
     Indication: PRODUCT USED FOR UNKNOWN INDICATION
     Dosage: 1 DF, BID
     Route: 048
     Dates: end: 20080211
  3. ZOVIRAX [Suspect]
     Indication: HUMAN HERPESVIRUS 6 INFECTION
     Dosage: 15 MG/KG, Q8H
     Route: 042
     Dates: start: 20080208, end: 20080212
  4. FLODIL LP [Suspect]
     Dosage: 1 DF, QD
     Route: 048
     Dates: end: 20080211
  5. AUGMENTIN [Suspect]
     Indication: LUNG DISORDER
     Dosage: 1 G, TID
     Route: 048
     Dates: start: 20080208, end: 20080213
  6. LOVENOX [Suspect]
     Dosage: 1 DF, ONCE/SINGLE
     Route: 058
     Dates: start: 20080211
  7. ATARAX /CAN/ [Suspect]
     Indication: AGITATION
     Dosage: 1 DF, ONCE/SINGLE
     Route: 042
     Dates: start: 20080211
  8. KASKADIL [Suspect]
     Indication: PROPHYLAXIS
     Dosage: 1 DF, ONCE/SINGLE
     Route: 042
     Dates: start: 20080208
  9. PREVISCAN [Concomitant]
     Indication: PROPHYLAXIS
     Dosage: 0.5 CI, QD
     Route: 048
  10. NEO-MERCAZOLE [Concomitant]
     Indication: ADENOMA BENIGN
     Route: 065
  11. AVLOCARDYL [Concomitant]
     Indication: ADENOMA BENIGN
     Route: 065
  12. DOLIPRANE [Concomitant]
     Indication: PRODUCT USED FOR UNKNOWN INDICATION
     Route: 065
     Dates: start: 20071008, end: 20080210
  13. TIAPRIDAL [Concomitant]
     Indication: PRODUCT USED FOR UNKNOWN INDICATION
     Dosage: 1 DF, ONCE/SINGLE
     Route: 065
     Dates: start: 20080208, end: 20080208

REACTIONS (1)
  - Renal failure acute [Recovered/Resolved]
